FAERS Safety Report 13480534 (Version 10)
Quarter: 2018Q2

REPORT INFORMATION
  Report Type: Spontaneous
  Country: JP (occurrence: JP)
  Receive Date: 20170425
  Receipt Date: 20180420
  Transmission Date: 20180711
  Serious: Yes (Hospitalization, Other)
  Sender: FDA-Public Use
  Company Number: JP-009507513-1703JPN002834J

PATIENT
  Age: 63 Year
  Sex: Male
  Weight: 69 kg

DRUGS (3)
  1. KEYTRUDA [Suspect]
     Active Substance: PEMBROLIZUMAB
     Indication: LUNG ADENOCARCINOMA
     Dosage: 200 MG, Q3W
     Route: 041
     Dates: start: 20170322, end: 20170322
  2. KEYTRUDA [Suspect]
     Active Substance: PEMBROLIZUMAB
     Dosage: 200 MG, Q3W
     Route: 041
     Dates: start: 20170913, end: 20170913
  3. KEYTRUDA [Suspect]
     Active Substance: PEMBROLIZUMAB
     Dosage: 200 MG, Q3W
     Route: 041
     Dates: start: 20180417

REACTIONS (13)
  - Vision blurred [Unknown]
  - Haemoptysis [Recovered/Resolved]
  - Visual impairment [Unknown]
  - Photophobia [Recovered/Resolved]
  - Malaise [Unknown]
  - Hyperaemia [Unknown]
  - Rash pruritic [Recovered/Resolved]
  - Headache [Unknown]
  - Neutrophil count decreased [Recovered/Resolved]
  - Chest pain [Recovered/Resolved]
  - Hyperthyroidism [Recovered/Resolved]
  - White blood cell count decreased [Recovering/Resolving]
  - Pyrexia [Unknown]

NARRATIVE: CASE EVENT DATE: 20170324
